FAERS Safety Report 17953217 (Version 1)
Quarter: 2020Q2

REPORT INFORMATION
  Report Type: Spontaneous
  Country: NL (occurrence: NL)
  Receive Date: 20200627
  Receipt Date: 20200627
  Transmission Date: 20200714
  Serious: Yes (Death, Hospitalization)
  Sender: FDA-Public Use
  Company Number: NVSC2020NL179574

PATIENT
  Sex: Female

DRUGS (8)
  1. ISONIAZID. [Concomitant]
     Active Substance: ISONIAZID
     Indication: PRODUCT USED FOR UNKNOWN INDICATION
     Dosage: UNK (EVERY)
     Route: 065
  2. ETANERCEPT [Suspect]
     Active Substance: ETANERCEPT
     Indication: PRODUCT USED FOR UNKNOWN INDICATION
     Dosage: 1 MG/KG, QW
     Route: 065
  3. METHYLPREDNISOLONE. [Suspect]
     Active Substance: METHYLPREDNISOLONE
     Indication: JUVENILE IDIOPATHIC ARTHRITIS
     Dosage: UNK (EVERY)
     Route: 065
  4. RIFAMPICIN [Concomitant]
     Active Substance: RIFAMPIN
     Indication: PRODUCT USED FOR UNKNOWN INDICATION
     Dosage: UNK (EVERY)
     Route: 065
  5. METHOTREXATE. [Suspect]
     Active Substance: METHOTREXATE
     Indication: JUVENILE IDIOPATHIC ARTHRITIS
     Dosage: UNK (EVERY)
     Route: 065
  6. CICLOSPORIN - 1 A PHARMA 10 MG WEICHKAPSELN [Suspect]
     Active Substance: CYCLOSPORINE
     Indication: JUVENILE IDIOPATHIC ARTHRITIS
     Route: 065
  7. INFLIXIMAB [Suspect]
     Active Substance: INFLIXIMAB
     Indication: PRODUCT USED FOR UNKNOWN INDICATION
     Dosage: 20 MG/KG (EVERY)
     Route: 065
  8. PREDNISONE. [Suspect]
     Active Substance: PREDNISONE
     Indication: PRODUCT USED FOR UNKNOWN INDICATION
     Dosage: UNK (EVERY)
     Route: 065

REACTIONS (16)
  - Device related infection [Fatal]
  - Escherichia infection [Fatal]
  - Pneumonia lipoid [Fatal]
  - Cardiopulmonary failure [Fatal]
  - Central venous pressure increased [Fatal]
  - Opportunistic infection [Fatal]
  - Bacterial test positive [Fatal]
  - Death [Fatal]
  - Lymphopenia [Fatal]
  - Pneumonia [Fatal]
  - Cardiac arrest [Fatal]
  - Immune system disorder [Fatal]
  - Tuberculosis [Fatal]
  - Cyst [Fatal]
  - Respiratory failure [Fatal]
  - Oxygen saturation decreased [Fatal]
